FAERS Safety Report 7861568 (Version 8)
Quarter: 2014Q2

REPORT INFORMATION
  Report Type: Spontaneous
  Country: US (occurrence: US)
  Receive Date: 20110318
  Receipt Date: 20131024
  Transmission Date: 20141212
  Serious: Yes (Hospitalization, Other)
  Sender: FDA-Public Use
  Company Number: US-PFIZER INC-2011056922

PATIENT
  Age: 59 Year
  Sex: Female

DRUGS (69)
  1. DILANTIN [Suspect]
     Indication: CONVULSION
     Dosage: 300 MG, 1X/DAY
     Route: 048
     Dates: start: 20101019, end: 20101218
  2. DILANTIN [Suspect]
     Dosage: 200 MG, 2X/DAY
     Route: 048
     Dates: start: 20101020, end: 20110109
  3. CEREBYX [Concomitant]
     Dosage: 100 MG, 3X/DAY (EVERY 8 HOURS)
     Route: 042
     Dates: start: 20101019, end: 20101218
  4. NOVOLIN R [Concomitant]
     Dosage: EVERY FOUR HOURS
     Route: 058
     Dates: start: 20101019, end: 20101218
  5. PEPCID [Concomitant]
     Dosage: 20 MG, EVERY 12 HR
     Route: 048
     Dates: start: 20101019, end: 20101219
  6. PEPCID [Concomitant]
     Dosage: 20 MG, 2X/DAY
     Route: 048
     Dates: start: 20101020, end: 20110121
  7. DECADRON [Concomitant]
     Dosage: 4 MG, 4X/DAY
     Route: 042
     Dates: start: 20101019, end: 20101218
  8. MAGNESIUM GLUCONATE [Concomitant]
     Dosage: 500 MG, 4X/DAY (EVERY 6 HOURS)
     Route: 048
     Dates: start: 20101019, end: 20110117
  9. LOPRESSOR [Concomitant]
     Dosage: 50 MG, 2X/DAY
     Route: 048
     Dates: start: 20101019, end: 20110117
  10. MULTIVITAMINS [Concomitant]
     Dosage: ONE TABLET, DAILY
     Route: 048
     Dates: start: 20101019, end: 20110120
  11. TYLENOL [Concomitant]
     Indication: HEADACHE
     Dosage: 650 MG, EVERY FOUR HOURS/PRN
     Route: 048
     Dates: start: 20101019, end: 20110121
  12. TYLENOL [Concomitant]
     Indication: PAIN
  13. REGLAN [Concomitant]
     Indication: NAUSEA
     Dosage: 10 MG, EVERY 6 HR/PRN
     Route: 042
     Dates: start: 20101019, end: 20101218
  14. APRESOLINE [Concomitant]
     Dosage: 10 MG,EVERY HR/PRN
     Route: 042
     Dates: start: 20101019, end: 20101218
  15. NORMODYNE [Concomitant]
     Dosage: Q20M
     Route: 042
     Dates: start: 20101019, end: 20110117
  16. ATIVAN [Concomitant]
     Dosage: 0.5 MG, 4X/DAY/PRN
     Dates: start: 20101019, end: 20110117
  17. ATIVAN [Concomitant]
     Dosage: 1 MG, 1X/DAY
     Route: 048
     Dates: start: 20101109
  18. ALDACTONE [Concomitant]
     Dosage: 50 MG, DAILY
     Route: 048
     Dates: start: 20101020, end: 20110110
  19. PRILOSEC [Concomitant]
     Dosage: 20 MG, AFTER BREAK FAST
     Route: 048
     Dates: start: 20101020, end: 20110118
  20. PERIDEX [Concomitant]
     Dosage: AS NEEDED
     Dates: start: 20101105, end: 20110117
  21. ISOPTO TEARS [Concomitant]
     Dosage: UNK, EVERY 4 HR/PRN
     Dates: start: 20101105, end: 20110117
  22. CHRONULAC [Concomitant]
     Dosage: 15 ML, 3X/DAY
     Route: 048
     Dates: start: 20101105, end: 20110104
  23. BENADRYL [Concomitant]
     Indication: PRURITUS
     Dosage: 25 MG, EVERY 2 HRS/PRN
     Route: 042
     Dates: start: 20101105, end: 20110117
  24. BENADRYL [Concomitant]
     Indication: URTICARIA
  25. NORCO [Concomitant]
     Indication: PAIN
     Dosage: 5/325 MG   EVERY 4 HR/PRN
     Route: 048
     Dates: start: 20101105, end: 20101128
  26. NORCO [Concomitant]
     Dosage: 7.5/325 1-2 TABLETS EVERY 4 HOURS
     Route: 048
     Dates: start: 20101105, end: 20101115
  27. PROMETHAZINE [Concomitant]
     Indication: NAUSEA
     Dosage: 25 MG,  EVERY 4 HOURS/PRN
     Route: 042
     Dates: start: 20101105, end: 20110118
  28. TESSALON [Concomitant]
     Indication: COUGH
     Dosage: 1-2 CAPSULES THREE TIMES DAILY
     Route: 048
     Dates: start: 20101105, end: 20110117
  29. ROBITUSSIN WITH CODEINE [Concomitant]
     Indication: COUGH
     Dosage: 10 ML, EVERY 4 HR
     Route: 048
     Dates: start: 20101105, end: 20110117
  30. PEPTO-BISMOL [Concomitant]
     Dosage: 20- 30 ML
     Dates: start: 20101105, end: 20110117
  31. LOPERAMIDE [Concomitant]
     Indication: DIARRHOEA
     Dosage: 2 MG, EVERY 4 HR
     Route: 048
     Dates: start: 20101105, end: 20110117
  32. ALTEPLASE [Concomitant]
     Dosage: 2 MG, UNK
     Route: 042
     Dates: start: 20101105, end: 20110117
  33. DILAUDID [Concomitant]
     Indication: PAIN
     Dosage: 2-4 MG, EVERY 3 HR AS NEEDED
     Route: 042
     Dates: start: 20101105, end: 20101115
  34. MAGNESIUM SULFATE [Concomitant]
     Dosage: 1 G, AS NEEDED
     Route: 042
     Dates: start: 20101106, end: 20110117
  35. MAGNESIUM SULFATE [Concomitant]
     Dosage: 2 G, AS NEEDED
     Route: 042
     Dates: start: 20101106, end: 20110117
  36. AMBIEN [Concomitant]
     Indication: SLEEP DISORDER
     Dosage: 5 MG, AT BED TIME 1-2 TABLETS
     Route: 048
     Dates: start: 20101105, end: 20110104
  37. DARVOCET-N [Concomitant]
     Indication: PAIN
     Dosage: 1-2 TABLETS EVERY 4 HRS
     Route: 048
     Dates: start: 20101110, end: 20101129
  38. MORPHINE [Concomitant]
     Indication: PAIN
     Dosage: 4 MG, EVERY 3 HOURS/PRN
     Route: 042
     Dates: start: 20101110, end: 20101129
  39. ZOFRAN [Concomitant]
     Indication: NAUSEA
     Dosage: 32 MG, 1X/DAY (EVERY 24 HOURS AS NEEDED)
     Route: 042
     Dates: start: 20101019, end: 20110118
  40. MILK OF MAGNESIA [Concomitant]
     Indication: CONSTIPATION
     Dosage: 30 ML, AT BED TIME/PRN
     Route: 048
     Dates: start: 20101110, end: 20110118
  41. RESTORIL [Concomitant]
     Indication: SLEEP DISORDER
     Dosage: 15 MG, AT BED TIME /PRN
     Route: 048
     Dates: start: 20101110, end: 20110118
  42. MAALOX [Concomitant]
     Indication: DYSPEPSIA
     Dosage: 15 ML,EVERY 3 HR/PRN
     Route: 048
     Dates: start: 20101110, end: 20110118
  43. PRAVACHOL [Concomitant]
     Dosage: 40 MG, AT BED TIME
     Route: 048
     Dates: start: 20101105, end: 20110109
  44. PROCTOFOAM [Concomitant]
     Dosage: EVERY 6 HR/PRN
     Dates: start: 20101105, end: 20110117
  45. VANCOMYCIN [Concomitant]
     Dosage: 1000 MG,EVERY 12 HR
     Route: 042
     Dates: start: 20101105, end: 20101124
  46. LEVAQUIN [Concomitant]
     Dosage: 750 MG,DAILY
     Route: 042
     Dates: start: 20101105, end: 20101119
  47. OCEAN [Concomitant]
     Dosage: 1 SPRAY EVERY 4 HR/PRN
     Dates: start: 20101105, end: 20110117
  48. DECADRON [Concomitant]
     Dosage: 2 MG, 2X/DAY (2 MG TABLETS ONE TABLET TWICE DAILY)
     Route: 048
     Dates: start: 20101021, end: 20110104
  49. DECADRON [Concomitant]
     Dosage: 2 MG, 1X/DAY (2 MG TABLETS ONE TABLET DAILY AT BREAKFAST)
     Route: 048
     Dates: start: 20101119, end: 20110118
  50. DECADRON [Concomitant]
     Dosage: 4 MG, 4X/DAY (4 MG TABLETS ONE TABLET EVERY 6 HRS WITH FOOD)
     Route: 048
     Dates: start: 20101107, end: 20110106
  51. DECADRON [Concomitant]
     Dosage: 4 MG, 2X/DAY (4 MG TABLETS ONE TABLET TWICE DAILY WITH FOOD)
     Route: 048
     Dates: start: 20101109, end: 20101111
  52. DECADRON [Concomitant]
     Dosage: 4 MG TABLETS ONE TABLET DAILY WITH FOOD
     Route: 048
     Dates: start: 20101112, end: 20101114
  53. DECADRON [Concomitant]
     Dosage: 4 MG TABLETS HALF TABLET DAILY WITH FOOD
     Route: 048
     Dates: start: 20101115, end: 20110121
  54. DOMEBORO [Concomitant]
     Dosage: 1 PACKET AS NEEDED
     Dates: start: 20101105, end: 20110117
  55. PHENERGAN [Concomitant]
     Indication: NAUSEA
     Dosage: 25 MG TABLETS 25 MG TO 50 MG EVERY 4 HRS AS NEEDED
     Route: 048
     Dates: start: 20101105, end: 20110117
  56. PHENERGAN [Concomitant]
     Dosage: 25 MG, EVERY 3 HOURS AS NEEDED
     Route: 048
     Dates: start: 20101119, end: 20110118
  57. SLOW-MAG [Concomitant]
     Dosage: 192 MG, AS NEEDED (64 MG TABLETS)
     Route: 048
     Dates: start: 20101106, end: 20110117
  58. SLOW-MAG [Concomitant]
     Dosage: 128 MG, AS NEEDED (64 MG TABLETS)
     Route: 048
     Dates: start: 20101106, end: 20110117
  59. HEPARIN [Concomitant]
     Dosage: UNK
     Route: 042
     Dates: start: 20101109, end: 20101109
  60. LIDOCAINE [Concomitant]
     Dosage: 10ML
     Dates: start: 20101111
  61. LIDOCAINE [Concomitant]
     Dosage: 20ML
     Dates: start: 20101111
  62. VERSED [Concomitant]
     Dosage: 5 MG VIAL
     Dates: start: 20101111
  63. SUBLIMAZE [Concomitant]
     Dosage: 100MCG/2 ML AMPULE AT 200 MCG OF AN UNKNOWN FREQUENCY
     Dates: start: 20101111
  64. PEPCID [Concomitant]
     Dosage: 20 MG, 2X/DAY (EVERY 12 HOURS)
     Route: 042
     Dates: start: 20101019, end: 20101218
  65. THERAGRAN-M [Concomitant]
     Dosage: ONE TABLET DAILY WITH FOOD
     Route: 048
     Dates: start: 20101105, end: 20110104
  66. K-DUR [Concomitant]
     Dosage: 20 MEQ TABLETS AS NEEDED
     Route: 048
     Dates: start: 20101106, end: 20110117
  67. POTASSIUM CHLORIDE [Concomitant]
     Dosage: 20 MEQ/15 ML AS NEEDED
     Route: 042
     Dates: start: 20101106, end: 20110117
  68. POTASSIUM CHLORIDE [Concomitant]
     Dosage: 10 MEQ/50 ML 10 MEQ AS NEEDED
     Route: 042
     Dates: start: 20101106, end: 20110117
  69. ZOLEDRONIC ACID [Concomitant]
     Dosage: 4 MG DAILY,
     Route: 042
     Dates: start: 20101104, end: 20110824

REACTIONS (1)
  - Stevens-Johnson syndrome [Recovered/Resolved]
